FAERS Safety Report 12210160 (Version 1)
Quarter: 2016Q1

REPORT INFORMATION
  Report Type: Spontaneous
  Country: US (occurrence: US)
  Receive Date: 20160325
  Receipt Date: 20160325
  Transmission Date: 20160526
  Serious: No
  Sender: FDA-Public Use
  Company Number: US-PFIZER INC-2016137083

PATIENT
  Sex: Female

DRUGS (1)
  1. ZITHROMAX [Suspect]
     Active Substance: AZITHROMYCIN DIHYDRATE
     Indication: ACUTE SINUSITIS
     Dosage: 500 MG, DAILY (500MG QD X 3 DAYS)

REACTIONS (2)
  - Drug ineffective [Unknown]
  - Product use issue [Unknown]
